FAERS Safety Report 15416417 (Version 1)
Quarter: 2018Q3

REPORT INFORMATION
  Report Type: Spontaneous
  Country: FR (occurrence: FR)
  Receive Date: 20180924
  Receipt Date: 20180924
  Transmission Date: 20181010
  Serious: Yes (Other)
  Sender: FDA-Public Use
  Company Number: FR-SUN PHARMACEUTICAL INDUSTRIES LTD-2018RR-185068

PATIENT
  Age: 60 Year
  Sex: Female
  Weight: 72 kg

DRUGS (2)
  1. MONTELUKAST [Suspect]
     Active Substance: MONTELUKAST SODIUM
     Indication: RHINITIS
     Dosage: 1 DF, DAILY
     Route: 048
     Dates: start: 2018, end: 20180720
  2. DESLORATADINE. [Suspect]
     Active Substance: DESLORATADINE
     Indication: RHINITIS
     Dosage: 1 DF, DAILY
     Route: 048
     Dates: start: 2018, end: 20180720

REACTIONS (1)
  - Hallucination, visual [Recovered/Resolved]

NARRATIVE: CASE EVENT DATE: 20180713
